FAERS Safety Report 6529782-X (Version None)
Quarter: 2010Q1

REPORT INFORMATION
  Report Type: 
  Country: None (occurrence: None)
  Receive Date: 20100107
  Receipt Date: 20100105
  Transmission Date: 20100710
  Serious: Yes (Death, Hospitalization)
  Sender: FDA-Public Use
  Company Number: A0782340A

PATIENT
  Age: 79 Year
  Sex: Female

DRUGS (5)
  1. ADVAIR DISKUS 100/50 [Suspect]
     Indication: CHRONIC OBSTRUCTIVE PULMONARY DISEASE
     Dosage: 1PUFF TWICE PER DAY
     Route: 055
     Dates: start: 20090301, end: 20090424
  2. ALBUTEROL [Suspect]
     Indication: PNEUMONIA
     Route: 065
  3. LASIX [Concomitant]
  4. OXYGEN [Concomitant]
  5. CONCURRENT MEDICATIONS [Concomitant]

REACTIONS (40)
  - ARTERIOSCLEROSIS [None]
  - ATRIAL FIBRILLATION [None]
  - BLOOD PRESSURE INCREASED [None]
  - BONE DENSITY DECREASED [None]
  - CANDIDIASIS [None]
  - CARDIAC DISORDER [None]
  - CARDIAC FAILURE CONGESTIVE [None]
  - CATARACT [None]
  - CEREBROVASCULAR ACCIDENT [None]
  - CHEST PAIN [None]
  - DECREASED APPETITE [None]
  - DECREASED IMMUNE RESPONSIVENESS [None]
  - DRUG INTERACTION [None]
  - DYSKINESIA [None]
  - DYSPHAGIA [None]
  - DYSPHONIA [None]
  - DYSPNOEA [None]
  - ELDERLY [None]
  - EYE DISORDER [None]
  - FEELING ABNORMAL [None]
  - FLUID RETENTION [None]
  - GAIT DISTURBANCE [None]
  - GLAUCOMA [None]
  - HEART RATE INCREASED [None]
  - HEART RATE IRREGULAR [None]
  - MASTICATION DISORDER [None]
  - MEDICATION ERROR [None]
  - MOVEMENT DISORDER [None]
  - NERVOUS SYSTEM DISORDER [None]
  - NERVOUSNESS [None]
  - ORAL CANDIDIASIS [None]
  - ORAL PAIN [None]
  - OROPHARYNGEAL CANDIDIASIS [None]
  - OROPHARYNGEAL PAIN [None]
  - PAIN [None]
  - PNEUMONIA [None]
  - PULMONARY OEDEMA [None]
  - STOMACH MASS [None]
  - THROAT IRRITATION [None]
  - TRACHEOSTOMY [None]
